FAERS Safety Report 8068225-4 (Version None)
Quarter: 2012Q1

REPORT INFORMATION
  Report Type: 
  Country: None (occurrence: None)
  Receive Date: 20120124
  Receipt Date: 20111005
  Transmission Date: 20120608
  Serious: No
  Sender: FDA-Public Use
  Company Number: US-AMGEN-USASP2011051494

PATIENT
  Age: 85 Year
  Sex: Female

DRUGS (2)
  1. FOSAMAX [Concomitant]
  2. PROLIA [Suspect]
     Indication: OSTEOPOROSIS POSTMENOPAUSAL
     Dosage: 60 MG, Q6MO
     Dates: start: 20111004

REACTIONS (2)
  - BONE PAIN [None]
  - MOBILITY DECREASED [None]
